FAERS Safety Report 13274537 (Version 1)
Quarter: 2017Q1

REPORT INFORMATION
  Report Type: Spontaneous
  Country: US (occurrence: US)
  Receive Date: 20170227
  Receipt Date: 20170227
  Transmission Date: 20170428
  Serious: Yes (Other)
  Sender: FDA-Public Use
  Company Number: US-ELI_LILLY_AND_COMPANY-US201702005908

PATIENT
  Sex: Female

DRUGS (9)
  1. LEXAPRO [Suspect]
     Active Substance: ESCITALOPRAM OXALATE
     Indication: PRODUCT USED FOR UNKNOWN INDICATION
     Dosage: UNK, UNKNOWN
     Route: 065
  2. CYMBALTA [Suspect]
     Active Substance: DULOXETINE HYDROCHLORIDE
     Indication: PRODUCT USED FOR UNKNOWN INDICATION
     Dosage: UNK, UNKNOWN
     Route: 065
  3. GILENYA [Suspect]
     Active Substance: FINGOLIMOD HYDROCHLORIDE
     Indication: PRODUCT USED FOR UNKNOWN INDICATION
     Dosage: UNK, UNKNOWN
     Route: 065
  4. TYSABRI [Suspect]
     Active Substance: NATALIZUMAB
     Indication: MULTIPLE SCLEROSIS
     Dosage: 300 MG, MONTHLY (1/M)
     Route: 042
  5. COPAXONE [Suspect]
     Active Substance: GLATIRAMER ACETATE
     Indication: PRODUCT USED FOR UNKNOWN INDICATION
     Dosage: UNK, UNKNOWN
     Route: 065
  6. NUVIGIL [Suspect]
     Active Substance: ARMODAFINIL
     Indication: PRODUCT USED FOR UNKNOWN INDICATION
     Dosage: UNK, UNKNOWN
     Route: 065
  7. SOLU-MEDROL [Suspect]
     Active Substance: METHYLPREDNISOLONE SODIUM SUCCINATE
     Indication: PRODUCT USED FOR UNKNOWN INDICATION
     Dosage: UNK, UNKNOWN
     Route: 065
  8. ACTHAR [Suspect]
     Active Substance: CORTICOTROPIN
     Indication: PRODUCT USED FOR UNKNOWN INDICATION
     Dosage: UNK, UNKNOWN
     Route: 065
  9. AMPYRA [Suspect]
     Active Substance: DALFAMPRIDINE
     Indication: PRODUCT USED FOR UNKNOWN INDICATION
     Dosage: UNK, UNKNOWN
     Route: 065

REACTIONS (12)
  - Amnesia [Unknown]
  - Lip swelling [Unknown]
  - Urticaria [Unknown]
  - Hemiparesis [Unknown]
  - Deafness [Unknown]
  - Somnolence [Unknown]
  - Tinnitus [Unknown]
  - Condition aggravated [Unknown]
  - Irritability [Unknown]
  - Cognitive disorder [Unknown]
  - Hemiplegia [Unknown]
  - Confusional state [Unknown]
